FAERS Safety Report 8936127 (Version 1)
Quarter: 2012Q4

REPORT INFORMATION
  Report Type: 
  Country: US (occurrence: US)
  Receive Date: 20121130
  Receipt Date: 20121130
  Transmission Date: 20130627
  Serious: No
  Sender: FDA-Public Use
  Company Number: US-ABBOTT-12P-163-0976904-00

PATIENT
  Sex: Male
  Weight: 82.63 kg

DRUGS (10)
  1. ANDROGEL [Suspect]
     Indication: BLOOD TESTOSTERONE DECREASED
     Dosage: 1 pump
     Route: 061
     Dates: start: 20120625, end: 20120725
  2. ANDROGEL [Suspect]
     Dosage: 2 pumps
     Route: 061
     Dates: start: 20120725, end: 201208
  3. ANDROGEL [Suspect]
     Dosage: 3 pumps
     Route: 061
     Dates: start: 201208
  4. NOVOLOG [Concomitant]
     Indication: DIABETES MELLITUS
     Dosage: Via pump
  5. LINISOPRIL (NON-ABBOTT) [Concomitant]
     Indication: PROPHYLAXIS
  6. LEVOTHYROXINE [Concomitant]
     Indication: HYPOTHYROIDISM
     Dosage: Unknown
  7. METANX [Concomitant]
     Indication: NEUROPATHY PERIPHERAL
     Dosage: Unknown
  8. ASPIRIN [Concomitant]
     Indication: PRODUCT USED FOR UNKNOWN INDICATION
  9. SIMVASTATIN [Concomitant]
     Indication: BLOOD CHOLESTEROL INCREASED
     Dosage: Unknown
  10. CYMBALTA [Concomitant]
     Indication: NEUROPATHY PERIPHERAL

REACTIONS (4)
  - Asthenia [Not Recovered/Not Resolved]
  - Weight decreased [Not Recovered/Not Resolved]
  - Drug ineffective [Not Recovered/Not Resolved]
  - Drug ineffective [Not Recovered/Not Resolved]
